FAERS Safety Report 11761095 (Version 1)
Quarter: 2015Q4

REPORT INFORMATION
  Report Type: Spontaneous
  Country: US (occurrence: US)
  Receive Date: 20151120
  Receipt Date: 20151120
  Transmission Date: 20160304
  Serious: Yes (Hospitalization, Other)
  Sender: FDA-Public Use
  Company Number: US-DSJP-DSU-2015-125987

PATIENT

DRUGS (2)
  1. BENICAR HCT [Suspect]
     Active Substance: HYDROCHLOROTHIAZIDE\OLMESARTAN MEDOXOMIL
     Indication: PRODUCT USED FOR UNKNOWN INDICATION
     Dosage: 40/12.5MG
  2. BENICAR [Suspect]
     Active Substance: OLMESARTAN MEDOXOMIL
     Indication: HYPERTENSION
     Dosage: 40 MG, QD
     Dates: start: 20081210, end: 20150520

REACTIONS (10)
  - Colitis [Unknown]
  - Gastroenteritis [Unknown]
  - Duodenal ulcer [Unknown]
  - Diverticulitis [Unknown]
  - Constipation [Unknown]
  - Duodenitis [Unknown]
  - Gastrooesophageal reflux disease [Unknown]
  - Malabsorption [Unknown]
  - Irritable bowel syndrome [Unknown]
  - Rectal haemorrhage [Unknown]

NARRATIVE: CASE EVENT DATE: 2008
